FAERS Safety Report 14638193 (Version 5)
Quarter: 2018Q4

REPORT INFORMATION
  Report Type: Report from Study
  Country: None (occurrence: ZA)
  Receive Date: 20180314
  Receipt Date: 20181115
  Transmission Date: 20190204
  Serious: Yes (Hospitalization)
  Sender: FDA-Public Use
  Company Number: ZA-ABBVIE-18P-143-2281798-00

PATIENT
  Age: 70 Year
  Sex: Male
  Weight: 59 kg

DRUGS (38)
  1. VENETOCLAX. [Suspect]
     Active Substance: VENETOCLAX
     Route: 048
     Dates: start: 20180210, end: 20180307
  2. AZACITIDINE. [Suspect]
     Active Substance: AZACITIDINE
     Dosage: DAY 1-7 OF EACH 28-DAY CYCLE
     Route: 058
     Dates: start: 20180404
  3. ZYPREXA [Concomitant]
     Active Substance: OLANZAPINE
     Indication: DEPRESSION
     Route: 048
     Dates: start: 20180226, end: 20180306
  4. SERDEP [Concomitant]
     Route: 048
     Dates: start: 20180801, end: 20180925
  5. LASIX [Concomitant]
     Active Substance: FUROSEMIDE
     Route: 042
     Dates: start: 20180311, end: 20180311
  6. LASIX [Concomitant]
     Active Substance: FUROSEMIDE
     Route: 042
     Dates: start: 20180323, end: 20180324
  7. TEMGESIC [Concomitant]
     Active Substance: BUPRENORPHINE HYDROCHLORIDE
     Indication: IMPLANT SITE PAIN
     Route: 058
     Dates: start: 20180306, end: 20180307
  8. AZASAN [Concomitant]
     Active Substance: AZATHIOPRINE
     Indication: CROHN^S DISEASE
     Route: 048
     Dates: start: 1989, end: 20180925
  9. AZACITIDINE. [Suspect]
     Active Substance: AZACITIDINE
     Indication: ACUTE MYELOID LEUKAEMIA
     Dosage: DAY 1-7 OF EACH 28-DAY CYCLE
     Route: 058
     Dates: start: 20180208, end: 20180214
  10. ZYVOXID [Concomitant]
     Active Substance: LINEZOLID
     Indication: PROPHYLAXIS
     Route: 042
     Dates: start: 20180226, end: 20180402
  11. MAGNESIUM SULPHATE [Concomitant]
     Active Substance: MAGNESIUM SULFATE
     Indication: HYPOMAGNESAEMIA
     Route: 042
     Dates: start: 20180305, end: 20180414
  12. LARGACTIL [Concomitant]
     Active Substance: CHLORPROMAZINE
     Indication: HICCUPS
     Route: 042
     Dates: start: 20180309, end: 20180321
  13. ANVIRO [Concomitant]
     Indication: INFECTION PROPHYLAXIS
     Route: 048
     Dates: start: 20180201, end: 20180925
  14. VENETOCLAX. [Suspect]
     Active Substance: VENETOCLAX
     Route: 048
     Dates: start: 20180209, end: 20180209
  15. LASIX [Concomitant]
     Active Substance: FUROSEMIDE
     Indication: PROPHYLAXIS
     Route: 042
     Dates: start: 20180203, end: 20180203
  16. LASIX [Concomitant]
     Active Substance: FUROSEMIDE
     Indication: TRANSFUSION
     Route: 042
     Dates: start: 20180307, end: 20180307
  17. VENETOCLAX. [Suspect]
     Active Substance: VENETOCLAX
     Route: 048
     Dates: start: 20180404
  18. KYTRIL [Concomitant]
     Active Substance: GRANISETRON HYDROCHLORIDE
     Indication: PROPHYLAXIS OF NAUSEA AND VOMITING
     Route: 042
     Dates: start: 20180210, end: 20180416
  19. MAXOLON [Concomitant]
     Active Substance: METOCLOPRAMIDE HYDROCHLORIDE
     Indication: NAUSEA
     Route: 042
     Dates: start: 20180226, end: 20180416
  20. LASIX [Concomitant]
     Active Substance: FUROSEMIDE
     Indication: PROPHYLAXIS
     Route: 042
     Dates: start: 20180228, end: 20180228
  21. SOLU-CORTEF [Concomitant]
     Active Substance: HYDROCORTISONE SODIUM SUCCINATE
     Indication: SINUS DISORDER
     Route: 042
     Dates: start: 20180309, end: 20180322
  22. SERTRA [Concomitant]
     Active Substance: SERTRALINE HYDROCHLORIDE
     Indication: DEPRESSION
     Route: 048
     Dates: start: 20180306, end: 20180416
  23. STILPANE [Concomitant]
     Indication: CROHN^S DISEASE
     Route: 048
     Dates: start: 20180209, end: 20180403
  24. SERDEP [Concomitant]
     Indication: DEPRESSION
     Route: 048
     Dates: start: 20180201, end: 20180731
  25. DOVATE [Concomitant]
     Active Substance: CLOBETASOL
     Indication: PROPHYLAXIS
     Dosage: 4-6 TIMES DAILY; 1 APPLICATION
     Route: 061
     Dates: start: 20180209, end: 20180925
  26. IVEDAL [Concomitant]
     Active Substance: ZOLPIDEM TARTRATE
     Indication: INSOMNIA
     Route: 048
     Dates: start: 20180226, end: 20180925
  27. POTASSIUM CHLORIDE. [Concomitant]
     Active Substance: POTASSIUM CHLORIDE
     Indication: HYPOKALAEMIA
     Route: 042
     Dates: start: 20180305, end: 20180403
  28. ALLOPURINOL. [Concomitant]
     Active Substance: ALLOPURINOL
     Route: 048
     Dates: start: 20180203, end: 20180417
  29. LASIX [Concomitant]
     Active Substance: FUROSEMIDE
     Route: 042
     Dates: start: 20180417, end: 20180417
  30. PAROEX [Concomitant]
     Active Substance: CHLORHEXIDINE GLUCONATE
     Indication: CANDIDA INFECTION
  31. DS-24 [Concomitant]
     Indication: IMMUNE ENHANCEMENT THERAPY
     Route: 048
     Dates: start: 20180201, end: 20180925
  32. VENETOCLAX. [Suspect]
     Active Substance: VENETOCLAX
     Indication: ACUTE MYELOID LEUKAEMIA
     Route: 048
     Dates: start: 20180208, end: 20180208
  33. ALLOPURINOL. [Concomitant]
     Active Substance: ALLOPURINOL
     Indication: PROPHYLAXIS
     Route: 048
     Dates: start: 20180201, end: 20180202
  34. HUMIRA [Concomitant]
     Active Substance: ADALIMUMAB
     Indication: CROHN^S DISEASE
     Dosage: TWICE WEEKLY EVERY 2 WEEKS
     Route: 058
     Dates: start: 1978, end: 20180925
  35. MERONEM [Concomitant]
     Active Substance: MEROPENEM
     Indication: PROPHYLAXIS
     Route: 042
     Dates: start: 20180228, end: 20180417
  36. ATIVAN [Concomitant]
     Active Substance: LORAZEPAM
     Indication: ANXIETY
     Route: 048
     Dates: start: 20180226, end: 20180226
  37. STILNOX [Concomitant]
     Active Substance: ZOLPIDEM TARTRATE
     Indication: PROPHYLAXIS
     Route: 048
     Dates: start: 20180201, end: 20180627
  38. PAROEX [Concomitant]
     Active Substance: CHLORHEXIDINE GLUCONATE
     Indication: PROPHYLAXIS
     Route: 002
     Dates: start: 20180201, end: 20180627

REACTIONS (4)
  - Mucosal inflammation [Recovered/Resolved]
  - Abdominal pain upper [Recovered/Resolved]
  - Aspergillus infection [Recovered/Resolved]
  - Systemic candida [Recovered/Resolved]

NARRATIVE: CASE EVENT DATE: 20180226
